FAERS Safety Report 12967920 (Version 1)
Quarter: 2016Q4

REPORT INFORMATION
  Report Type: Spontaneous
  Country: US (occurrence: US)
  Receive Date: 20161122
  Receipt Date: 20161122
  Transmission Date: 20170207
  Serious: Yes (Hospitalization)
  Sender: FDA-Public Use
  Company Number: None

PATIENT
  Age: 62 Year
  Sex: Male
  Weight: 84.15 kg

DRUGS (1)
  1. LEVOFLOXACIN. [Suspect]
     Active Substance: LEVOFLOXACIN
     Indication: URINARY TRACT INFECTION
     Dosage: ?          QUANTITY:1 TABLET(S);?
     Route: 048

REACTIONS (8)
  - Acute kidney injury [None]
  - Somnolence [None]
  - Chest pain [None]
  - Tongue paralysis [None]
  - Arthralgia [None]
  - Speech disorder [None]
  - Dysphagia [None]
  - Cerebrovascular accident [None]

NARRATIVE: CASE EVENT DATE: 20161108
